FAERS Safety Report 24398906 (Version 1)
Quarter: 2024Q4

REPORT INFORMATION
  Report Type: Spontaneous
  Country: US (occurrence: US)
  Receive Date: 20241004
  Receipt Date: 20241004
  Transmission Date: 20250115
  Serious: Yes (Death)
  Sender: SHIONOGI
  Company Number: US-shionogi-202400000526

PATIENT
  Age: 87 Year
  Sex: Female

DRUGS (3)
  1. CEFIDEROCOL [Suspect]
     Active Substance: CEFIDEROCOL
     Indication: Acinetobacter infection
  2. CEFIDEROCOL [Suspect]
     Active Substance: CEFIDEROCOL
     Indication: Drug resistance
  3. CEFIDEROCOL [Suspect]
     Active Substance: CEFIDEROCOL
     Indication: Haematological infection

REACTIONS (2)
  - Death [Fatal]
  - Treatment failure [Unknown]
